FAERS Safety Report 19705224 (Version 1)
Quarter: 2021Q3

REPORT INFORMATION
  Report Type: Spontaneous
  Country: US (occurrence: US)
  Receive Date: 20210816
  Receipt Date: 20210816
  Transmission Date: 20211014
  Serious: No
  Sender: FDA-Public Use
  Company Number: None

PATIENT
  Age: 49 Year
  Sex: Female
  Weight: 93 kg

DRUGS (7)
  1. REGEN?COV [Suspect]
     Active Substance: CASIRIVIMAB\IMDEVIMAB
     Indication: COVID-19
     Dosage: ?          OTHER FREQUENCY:ONCE;?
     Route: 041
     Dates: start: 20210813, end: 20210813
  2. BENZONATE 200 MG [Concomitant]
     Dates: start: 20210812
  3. ESCITALOPRAM 20 MG TABLET [Concomitant]
     Dates: start: 20210630
  4. TOPIRAMATE 50 MG [Concomitant]
     Active Substance: TOPIRAMATE
     Dates: start: 20210518
  5. LOSARTAN 50 MG [Concomitant]
     Active Substance: LOSARTAN
     Dates: start: 20210423
  6. RIMEGEPANT (NURTEC ODT) 75 MG [Concomitant]
     Dates: start: 20210518
  7. LINZESS [Concomitant]
     Active Substance: LINACLOTIDE
     Dates: start: 20171116

REACTIONS (6)
  - Infusion related reaction [None]
  - Dyspnoea [None]
  - Anxiety [None]
  - Chest discomfort [None]
  - Erythema [None]
  - Drug hypersensitivity [None]

NARRATIVE: CASE EVENT DATE: 20210813
